FAERS Safety Report 4619313-3 (Version None)
Quarter: 2005Q2

REPORT INFORMATION
  Report Type: 
  Country: None (occurrence: None)
  Receive Date: 20050321
  Receipt Date: 20040220
  Transmission Date: 20051028
  Serious: Yes (Other)
  Sender: FDA-Public Use
  Company Number: 2004-02-1476

PATIENT
  Age: 28 Year
  Sex: Female
  Weight: 86.637 kg

DRUGS (6)
  1. PEG-INTRON [Suspect]
     Indication: HEPATITIS C
     Dosage: SUBCUTANEOUS
     Route: 058
     Dates: start: 20031014, end: 20040120
  2. REBETOL [Suspect]
     Indication: HEPATITIS C
     Dosage: ORAL
     Route: 048
     Dates: start: 20031014, end: 20040120
  3. VITAMINS/MINERALS/DIETARY SUPPLEMENTS (NOS) [Concomitant]
  4. SYNTHROID [Concomitant]
  5. NEXIUM [Concomitant]
  6. PRILOSEC [Concomitant]

REACTIONS (1)
  - OPTIC NEURITIS [None]
